FAERS Safety Report 19647783 (Version 2)
Quarter: 2021Q3

REPORT INFORMATION
  Report Type: Report from Study
  Country: BR (occurrence: BR)
  Receive Date: 20210802
  Receipt Date: 20210928
  Transmission Date: 20211014
  Serious: Yes (Life-Threatening, Hospitalization, Other)
  Sender: FDA-Public Use
  Company Number: NVSC2021BR171350

PATIENT
  Age: 80 Year
  Sex: Female
  Weight: 64 kg

DRUGS (2)
  1. DIOVAN [Suspect]
     Active Substance: VALSARTAN
     Indication: PRODUCT USED FOR UNKNOWN INDICATION
     Dosage: (IN USE)
     Route: 065
  2. DIOVAN HCT [Suspect]
     Active Substance: HYDROCHLOROTHIAZIDE\VALSARTAN
     Indication: PRODUCT USED FOR UNKNOWN INDICATION
     Dosage: UNK
     Route: 065
     Dates: end: 202008

REACTIONS (13)
  - Varicose vein [Unknown]
  - Mental disorder [Unknown]
  - Thrombosis [Recovered/Resolved]
  - Urosepsis [Unknown]
  - Blood pressure inadequately controlled [Recovering/Resolving]
  - Near death experience [Unknown]
  - Weight gain poor [Unknown]
  - Pulmonary embolism [Recovered/Resolved]
  - Malaise [Unknown]
  - Depressed level of consciousness [Recovered/Resolved]
  - Peripheral swelling [Unknown]
  - Oxygen saturation decreased [Unknown]
  - Weight decreased [Unknown]

NARRATIVE: CASE EVENT DATE: 20200803
